FAERS Safety Report 23777516 (Version 1)
Quarter: 2024Q2

REPORT INFORMATION
  Report Type: Spontaneous
  Country: DE (occurrence: DE)
  Receive Date: 20240424
  Receipt Date: 20240424
  Transmission Date: 20240716
  Serious: Yes (Other)
  Sender: FDA-Public Use
  Company Number: None

PATIENT
  Age: 15 Year
  Sex: Male
  Weight: 51 kg

DRUGS (1)
  1. QUETIAPINE [Suspect]
     Active Substance: QUETIAPINE
     Indication: Depression
     Dosage: TIME INTERVAL: TOTAL: 25MG
     Route: 048
     Dates: start: 202312, end: 202312

REACTIONS (7)
  - Psychotic symptom [Recovered/Resolved]
  - Product prescribing issue [Unknown]
  - Nausea [Recovered/Resolved]
  - Fear of death [Unknown]
  - Delusion [Recovered/Resolved]
  - Dizziness [Recovered/Resolved]
  - Anxiety [Unknown]

NARRATIVE: CASE EVENT DATE: 20231201
